FAERS Safety Report 5321054-4 (Version None)
Quarter: 2007Q2

REPORT INFORMATION
  Report Type: 
  Country: None (occurrence: None)
  Receive Date: 20070507
  Receipt Date: 20070507
  Transmission Date: 20071010
  Serious: Yes (Hospitalization)
  Sender: FDA-Public Use
  Company Number: None

PATIENT
  Sex: Female

DRUGS (2)
  1. CARBOPLATIN [Suspect]
     Indication: SMALL CELL LUNG CANCER STAGE UNSPECIFIED
     Dosage: DAY 1 OF 21 DAYS
     Route: 042
     Dates: start: 20070228
  2. IRINOTECAN [Suspect]
     Indication: SMALL CELL LUNG CANCER STAGE UNSPECIFIED
     Dosage: DAY 1 AND 8 OF 21 DAYS
     Route: 042
     Dates: start: 20070307

REACTIONS (6)
  - BACK PAIN [None]
  - DISEASE RECURRENCE [None]
  - NAUSEA [None]
  - SUPERIOR VENA CAVAL OCCLUSION [None]
  - THROMBOSIS [None]
  - WEIGHT DECREASED [None]
